FAERS Safety Report 8382389-4 (Version None)
Quarter: 2012Q2

REPORT INFORMATION
  Report Type: 
  Country: None (occurrence: None)
  Receive Date: 20120524
  Receipt Date: 20120520
  Transmission Date: 20120825
  Serious: Yes (Other)
  Sender: FDA-Public Use
  Company Number: JP-JNJFOC-20120302157

PATIENT
  Age: 50 Year
  Sex: Female

DRUGS (25)
  1. MEDICON [Concomitant]
     Indication: PAIN
     Route: 048
  2. MAGNESIUM SULFATE [Concomitant]
     Route: 048
  3. DAI-KENCHU-TO [Concomitant]
     Route: 048
  4. TEGRETOL [Concomitant]
     Indication: ANALGESIC THERAPY
     Route: 048
  5. TEGRETOL [Concomitant]
     Indication: NEURALGIA
     Route: 048
  6. LYRICA [Concomitant]
     Route: 048
  7. MEXITIL [Concomitant]
     Indication: PAIN
     Route: 065
  8. ROHYPNOL [Concomitant]
     Indication: SLEEP DISORDER THERAPY
     Dosage: AS NECESSARY
     Route: 048
  9. TOLEDOMIN [Interacting]
     Indication: DEPRESSION
     Dosage: 4 DF 1 PER 1 DAY
     Route: 048
     Dates: end: 20120316
  10. LYRICA [Concomitant]
     Route: 048
  11. LYRICA [Concomitant]
     Dosage: 75 MG 1 PER 1 DAY
     Route: 048
  12. MORPHINE HYDROCHLORIDE [Suspect]
     Indication: ANALGESIC THERAPY
     Route: 065
     Dates: end: 20120301
  13. LYRICA [Concomitant]
     Indication: ANALGESIC THERAPY
     Dosage: 75 MG 1 PER 1 DAY
     Route: 048
  14. TRAMADOL HYDROCHLORIDE AND ACETAMINOPHEN [Suspect]
     Dosage: 3 PER ONE DAY
     Route: 048
     Dates: start: 20111223
  15. MORPHINE HYDROCHLORIDE [Suspect]
     Indication: PAIN
     Route: 065
     Dates: end: 20120301
  16. ROHYPNOL [Concomitant]
     Indication: INSOMNIA
     Dosage: AS NECESSARY
     Route: 048
  17. TRAMADOL HYDROCHLORIDE AND ACETAMINOPHEN [Suspect]
     Dosage: 4 TABLETS PER DAY, 4 TIMES DAILY
     Route: 048
     Dates: start: 20111213
  18. TRAMADOL HYDROCHLORIDE AND ACETAMINOPHEN [Suspect]
     Dosage: 4 TABLETS PER DAY
     Route: 048
     Dates: start: 20111223
  19. LYRICA [Concomitant]
     Route: 048
  20. LYRICA [Concomitant]
     Route: 048
  21. LYRICA [Concomitant]
     Indication: PAIN
     Route: 048
  22. TRAMADOL HYDROCHLORIDE AND ACETAMINOPHEN [Suspect]
     Indication: PAIN
     Dosage: 3 TABLETS PER DAY, 3 TIMES A DAY
     Route: 048
  23. TRAMADOL HYDROCHLORIDE AND ACETAMINOPHEN [Suspect]
     Dosage: 3 PER ONE DAY
     Route: 048
     Dates: start: 20111213, end: 20111214
  24. LYRICA [Concomitant]
     Route: 048
  25. GASMOTIN [Concomitant]
     Indication: GASTRITIS
     Route: 048

REACTIONS (3)
  - LIVER FUNCTION TEST ABNORMAL [None]
  - DRUG INTERACTION [None]
  - INADEQUATE ANALGESIA [None]
